FAERS Safety Report 11571549 (Version 1)
Quarter: 2015Q3

REPORT INFORMATION
  Report Type: Spontaneous
  Country: US (occurrence: US)
  Receive Date: 20150916
  Receipt Date: 20150916
  Transmission Date: 20151125
  Serious: No
  Sender: FDA-Public Use
  Company Number: US-ELI_LILLY_AND_COMPANY-US200909006599

PATIENT
  Sex: Female

DRUGS (2)
  1. FORTEO [Suspect]
     Active Substance: TERIPARATIDE
     Indication: IMMUNE SYSTEM DISORDER
  2. RECLAST [Concomitant]
     Active Substance: ZOLEDRONIC ACID

REACTIONS (5)
  - Seborrhoea [Unknown]
  - Intentional product misuse [Unknown]
  - Fear [Unknown]
  - Psoriasis [Unknown]
  - Pruritus [Recovering/Resolving]
